FAERS Safety Report 10904278 (Version 2)
Quarter: 2015Q1

REPORT INFORMATION
  Report Type: Spontaneous
  Country: TR (occurrence: IR)
  Receive Date: 20150311
  Receipt Date: 20150330
  Transmission Date: 20150721
  Serious: Yes (Other)
  Sender: FDA-Public Use
  Company Number: TR-BAYER-2015-024889

PATIENT
  Age: 72 Year
  Sex: Male

DRUGS (4)
  1. NEXAVAR [Suspect]
     Active Substance: SORAFENIB
     Indication: RENAL CELL CARCINOMA
     Dosage: 200 MG, BID
     Route: 048
     Dates: start: 20150125
  2. CALCITRIOL. [Concomitant]
     Active Substance: CALCITRIOL
  3. ALOPURINOL [Concomitant]
     Active Substance: ALLOPURINOL
     Dosage: UNK
  4. NITROCONTIN [Concomitant]
     Dosage: UNK

REACTIONS (1)
  - Medication residue present [None]

NARRATIVE: CASE EVENT DATE: 20150212
